FAERS Safety Report 8145595-X (Version None)
Quarter: 2012Q1

REPORT INFORMATION
  Report Type: 
  Country: None (occurrence: None)
  Receive Date: 20120217
  Receipt Date: 20110420
  Transmission Date: 20120608
  Serious: No
  Sender: FDA-Public Use
  Company Number: US-ABBOTT-11P-163-0720394-00

PATIENT
  Sex: Male
  Weight: 112.59 kg

DRUGS (4)
  1. ASPIRIN [Concomitant]
     Indication: DRUG THERAPY
     Dosage: WITH DOSE OF SIMCOR AT BEDTIME
     Route: 048
  2. LOVAZA [Concomitant]
     Indication: PRODUCT USED FOR UNKNOWN INDICATION
     Route: 048
  3. MULTI-VITAMIN [Concomitant]
     Indication: PRODUCT USED FOR UNKNOWN INDICATION
     Route: 048
  4. SIMCOR [Suspect]
     Indication: PRODUCT USED FOR UNKNOWN INDICATION
     Dosage: 500/20MG AT BEDTIME
     Route: 048

REACTIONS (3)
  - PARAESTHESIA [None]
  - FEELING HOT [None]
  - ERYTHEMA [None]
